FAERS Safety Report 4825864-9 (Version None)
Quarter: 2005Q4

REPORT INFORMATION
  Report Type: 
  Country: None (occurrence: None)
  Receive Date: 20051109
  Receipt Date: 20051028
  Transmission Date: 20060501
  Serious: Yes (Hospitalization)
  Sender: FDA-Public Use
  Company Number: 200509IM000578

PATIENT
  Age: 56 Year
  Sex: Female

DRUGS (6)
  1. INFERGEN [Suspect]
     Indication: HEPATITIS C
     Dosage: 15 UG, QD, SUBCUTANEOUS
     Route: 058
     Dates: start: 20050526, end: 20050608
  2. INFERGEN [Suspect]
     Indication: HEPATITIS C
     Dosage: 15 UG, QD, SUBCUTANEOUS
     Route: 058
     Dates: start: 20050617
  3. RIBAVIRIN [Concomitant]
  4. TENORMIN [Concomitant]
  5. SYNTHROID [Concomitant]
  6. EFFEXOR [Concomitant]

REACTIONS (11)
  - ABDOMINAL PAIN [None]
  - AGEUSIA [None]
  - BLOOD POTASSIUM DECREASED [None]
  - DECREASED APPETITE [None]
  - DEHYDRATION [None]
  - DIARRHOEA [None]
  - ELECTROLYTE IMBALANCE [None]
  - FATIGUE [None]
  - FLATULENCE [None]
  - MYALGIA [None]
  - WHITE BLOOD CELL COUNT DECREASED [None]
